FAERS Safety Report 8363513-6 (Version None)
Quarter: 2012Q2

REPORT INFORMATION
  Report Type: 
  Country: None (occurrence: None)
  Receive Date: 20120516
  Receipt Date: 20120514
  Transmission Date: 20120825
  Serious: Yes (Other)
  Sender: FDA-Public Use
  Company Number: US-PFIZER INC-2009150803

PATIENT
  Sex: Female
  Weight: 67.131 kg

DRUGS (4)
  1. LYRICA [Suspect]
     Indication: SCIATIC NERVE INJURY
     Dosage: UNK
  2. CHANTIX [Suspect]
     Dosage: UNK
  3. ZOLOFT [Suspect]
     Dosage: UNK
  4. LYRICA [Suspect]
     Dosage: UNK

REACTIONS (2)
  - NAUSEA [None]
  - HALLUCINATION, AUDITORY [None]
